FAERS Safety Report 17719582 (Version 40)
Quarter: 2024Q3

REPORT INFORMATION
  Report Type: Report from Study
  Country: CA (occurrence: CA)
  Receive Date: 20200428
  Receipt Date: 20240725
  Transmission Date: 20241016
  Serious: Yes (Hospitalization, Other)
  Sender: NOVARTIS
  Company Number: PHHY2016CA125989

PATIENT
  Age: 70 Year
  Sex: Male

DRUGS (14)
  1. SANDOSTATIN [Suspect]
     Active Substance: OCTREOTIDE ACETATE
     Indication: Acromegaly
     Dosage: 50 UG
     Route: 058
     Dates: start: 20160708, end: 2016
  2. SANDOSTATIN [Suspect]
     Active Substance: OCTREOTIDE ACETATE
  3. SANDOSTATIN [Suspect]
     Active Substance: OCTREOTIDE ACETATE
  4. SANDOSTATIN LAR DEPOT [Suspect]
     Active Substance: OCTREOTIDE ACETATE
     Indication: Acromegaly
     Dosage: 20 MG, Q4W (EVERY 4 WEEKS)
     Route: 030
     Dates: start: 20160715
  5. SANDOSTATIN LAR DEPOT [Suspect]
     Active Substance: OCTREOTIDE ACETATE
     Dosage: 20 MG, Q4W (EVERY 4 WEEKS)
     Route: 030
     Dates: start: 20160715
  6. SANDOSTATIN LAR DEPOT [Suspect]
     Active Substance: OCTREOTIDE ACETATE
     Dosage: 20 MG, Q4W (EVERY 4 WEEKS)
     Route: 030
     Dates: start: 20160715
  7. RAMIPRIL [Suspect]
     Active Substance: RAMIPRIL
     Indication: Hypertension
     Dosage: 10 MG, QD
     Route: 065
  8. RAMIPRIL [Suspect]
     Active Substance: RAMIPRIL
     Dosage: 5 MG, QD
     Route: 065
  9. RAMIPRIL [Suspect]
     Active Substance: RAMIPRIL
     Dosage: UNK
     Route: 048
     Dates: start: 202111
  10. JAMP SENNOSIDES [Concomitant]
     Indication: Product used for unknown indication
     Dosage: UNK
     Route: 048
  11. METFORMIN [Concomitant]
     Active Substance: METFORMIN HYDROCHLORIDE
     Indication: Product used for unknown indication
     Dosage: UNK
     Route: 048
  12. ASPIRIN [Concomitant]
     Active Substance: ASPIRIN
     Indication: Product used for unknown indication
     Dosage: 80 MG (ENTRIC COATED TABLET)
     Route: 048
  13. CLONAZEPAM [Concomitant]
     Active Substance: CLONAZEPAM
     Indication: Product used for unknown indication
     Dosage: UNK
     Route: 048
  14. ACETAMINOPHEN [Concomitant]
     Active Substance: ACETAMINOPHEN
     Indication: Product used for unknown indication
     Dosage: 2 UNK, QID
     Route: 048

REACTIONS (43)
  - Campylobacter infection [Recovered/Resolved]
  - Intestinal infarction [Unknown]
  - Gastric infarction [Unknown]
  - Musculoskeletal stiffness [Unknown]
  - Groin pain [Unknown]
  - Rib fracture [Unknown]
  - Foot fracture [Unknown]
  - Fall [Unknown]
  - Transfusion-related circulatory overload [Unknown]
  - Loss of consciousness [Unknown]
  - Orthostatic hypotension [Unknown]
  - Blood pressure increased [Recovering/Resolving]
  - Body temperature decreased [Unknown]
  - Joint injury [Unknown]
  - Vertigo [Recovering/Resolving]
  - Hot flush [Unknown]
  - Cough [Unknown]
  - Blood pressure decreased [Unknown]
  - Blood pressure systolic increased [Unknown]
  - Back pain [Unknown]
  - Back injury [Unknown]
  - Pain [Recovering/Resolving]
  - Contusion [Recovering/Resolving]
  - Muscular weakness [Unknown]
  - Hypokinesia [Unknown]
  - Pain in extremity [Unknown]
  - Wound [Unknown]
  - Fatigue [Unknown]
  - Intermittent claudication [Unknown]
  - Sciatica [Unknown]
  - Lumbar hernia [Unknown]
  - Sleep apnoea syndrome [Unknown]
  - Osteoarthritis [Unknown]
  - Weight increased [Unknown]
  - Muscle spasms [Unknown]
  - Movement disorder [Unknown]
  - Blood glucose increased [Unknown]
  - Heart rate increased [Unknown]
  - Headache [Unknown]
  - Dizziness [Recovering/Resolving]
  - Injection site pain [Unknown]
  - Drug ineffective [Unknown]
  - Insomnia [Unknown]

NARRATIVE: CASE EVENT DATE: 20160801
